FAERS Safety Report 8766785 (Version 1)
Quarter: 2012Q4

REPORT INFORMATION
  Report Type: 
  Country: BR (occurrence: BR)
  Receive Date: 20120903
  Receipt Date: 20120903
  Transmission Date: 20130627
  Serious: Yes (Hospitalization)
  Sender: FDA-Public Use
  Company Number: BR-PFIZER INC-2012214892

PATIENT
  Age: 56 Year
  Sex: Female

DRUGS (1)
  1. FRONTAL [Suspect]
     Indication: PANIC DISORDER
     Dosage: 0.5 mg, 1x/day
     Dates: start: 2009

REACTIONS (1)
  - Breast cancer [Unknown]
